FAERS Safety Report 9315728 (Version 1)
Quarter: 2013Q2

REPORT INFORMATION
  Report Type: Other
  Country: GB (occurrence: GB)
  Receive Date: 20130529
  Receipt Date: 20130529
  Transmission Date: 20140414
  Serious: Yes (Other)
  Sender: FDA-Public Use
  Company Number: GB-WATSON-2013-09869

PATIENT
  Age: 29 Month
  Sex: Female

DRUGS (5)
  1. CLINDAMYCIN HYDROCHLORIDE (UNKNOWN) [Suspect]
     Indication: VARICELLA
     Dosage: 152 MG, UNKNOWN
     Route: 042
     Dates: start: 20130420, end: 20130424
  2. CEFTRIAXONE (UNKNOWN) [Suspect]
     Indication: VARICELLA
     Dosage: 1.2 G, UNKNOWN
     Route: 042
     Dates: start: 20130424, end: 20130429
  3. GENTAMICIN [Concomitant]
     Indication: PRODUCT USED FOR UNKNOWN INDICATION
     Dosage: 105 MG, UNKNOWN
     Route: 065
     Dates: start: 20130420, end: 20130422
  4. PARACETAMOL [Concomitant]
     Indication: PAIN
     Dosage: 225 MG, UNKNOWN
     Route: 065
     Dates: start: 20130420
  5. IBUPROFEN                          /00109205/ [Concomitant]
     Indication: PAIN
     Dosage: 110 MG, UNKNOWN
     Route: 065

REACTIONS (2)
  - Rash maculo-papular [Unknown]
  - Drug eruption [Unknown]
